FAERS Safety Report 22926862 (Version 3)
Quarter: 2023Q4

REPORT INFORMATION
  Report Type: Report from Study
  Country: NL (occurrence: NL)
  Receive Date: 20230910
  Receipt Date: 20231118
  Transmission Date: 20240110
  Serious: Yes (Hospitalization, Other)
  Sender: FDA-Public Use
  Company Number: NL-ABBVIE-4282329

PATIENT
  Age: 79 Year
  Sex: Male

DRUGS (14)
  1. CARBIDOPA\LEVODOPA [Suspect]
     Active Substance: CARBIDOPA\LEVODOPA
     Indication: Parkinson^s disease
     Dosage: MD 6.5 ML CD 3.5 ML/HOUR ED 3.0 ML, REMAINS AT 16 HOURS
     Route: 050
     Dates: start: 20230706, end: 20231018
  2. CARBIDOPA\LEVODOPA [Suspect]
     Active Substance: CARBIDOPA\LEVODOPA
     Dosage: MD 7.0 CD 3.5 ED 3.0 CDN 1.5, REMAINS AT 24 HOURS
     Route: 050
     Dates: start: 20230123, end: 20230123
  3. CARBIDOPA\LEVODOPA [Suspect]
     Active Substance: CARBIDOPA\LEVODOPA
     Dosage: MD 7.0 ML CD 3.5 ML/HOUR ED 3.0 ML, REMAINS AT 24 HOURS
     Route: 050
  4. CARBIDOPA\LEVODOPA [Suspect]
     Active Substance: CARBIDOPA\LEVODOPA
     Dosage: MD 6.0 ML, CD 3.5 ML/HOUR, ED 3.0 ML, END 3.0 ML, CND 1.5 ML/HOUR
     Route: 050
     Dates: start: 20231018
  5. CARBIDOPA\LEVODOPA [Suspect]
     Active Substance: CARBIDOPA\LEVODOPA
     Dosage: CD 3.4, REMAINS AT 24 HOURS
     Route: 050
  6. CARBIDOPA\LEVODOPA [Suspect]
     Active Substance: CARBIDOPA\LEVODOPA
     Dosage: CD 3.5
     Route: 050
     Dates: start: 20221018, end: 20221018
  7. CARBIDOPA\LEVODOPA [Suspect]
     Active Substance: CARBIDOPA\LEVODOPA
     Route: 050
     Dates: start: 20141205
  8. CARBIDOPA\LEVODOPA [Suspect]
     Active Substance: CARBIDOPA\LEVODOPA
     Dosage: CD 3.4
     Route: 050
     Dates: start: 20221004, end: 20221004
  9. CARBIDOPA\LEVODOPA [Suspect]
     Active Substance: CARBIDOPA\LEVODOPA
     Dosage: MD 7.0 CD 3.5 ED 3.0 CDN 1.5, REMAINS AT 16 HOURS
     Route: 050
  10. CARBIDOPA\LEVODOPA [Suspect]
     Active Substance: CARBIDOPA\LEVODOPA
     Dosage: CD 3.5, REMAINS AT 16 HOURS
     Route: 050
  11. Betnelan [Concomitant]
     Indication: Stoma site reaction
  12. POLYETHYLENE GLYCOLS [Concomitant]
     Active Substance: POLYETHYLENE GLYCOLS
     Indication: Abnormal faeces
  13. BENSERAZIDE HYDROCHLORIDE\LEVODOPA [Concomitant]
     Active Substance: BENSERAZIDE HYDROCHLORIDE\LEVODOPA
     Indication: Product used for unknown indication
  14. RIVOTRIL [Suspect]
     Active Substance: CLONAZEPAM
     Indication: Product used for unknown indication
     Route: 065

REACTIONS (34)
  - Orthostatic hypotension [Not Recovered/Not Resolved]
  - Stoma site reaction [Not Recovered/Not Resolved]
  - Stoma site erythema [Not Recovered/Not Resolved]
  - Fatigue [Not Recovered/Not Resolved]
  - Dyskinesia [Not Recovered/Not Resolved]
  - Weight abnormal [Not Recovered/Not Resolved]
  - Cerebral disorder [Recovered/Resolved]
  - On and off phenomenon [Not Recovered/Not Resolved]
  - Underdose [Unknown]
  - Aphasia [Not Recovered/Not Resolved]
  - Disturbance in attention [Not Recovered/Not Resolved]
  - Device difficult to use [Not Recovered/Not Resolved]
  - Memory impairment [Not Recovered/Not Resolved]
  - Bradykinesia [Not Recovered/Not Resolved]
  - Abnormal dreams [Not Recovered/Not Resolved]
  - Unevaluable event [Recovered/Resolved]
  - Sleep disorder [Recovered/Resolved]
  - Gait disturbance [Not Recovered/Not Resolved]
  - Loss of personal independence in daily activities [Not Recovered/Not Resolved]
  - Musculoskeletal stiffness [Not Recovered/Not Resolved]
  - Speech disorder [Not Recovered/Not Resolved]
  - Hallucination [Recovering/Resolving]
  - Weight decreased [Not Recovered/Not Resolved]
  - Chest discomfort [Recovered/Resolved]
  - Hypophagia [Not Recovered/Not Resolved]
  - Stoma site discharge [Not Recovered/Not Resolved]
  - Product storage error [Not Recovered/Not Resolved]
  - Parkinson^s disease [Not Recovered/Not Resolved]
  - Fall [Not Recovered/Not Resolved]
  - Urinary tract infection [Not Recovered/Not Resolved]
  - Stress [Not Recovered/Not Resolved]
  - Bladder catheterisation [Not Recovered/Not Resolved]
  - Dizziness postural [Not Recovered/Not Resolved]
  - Dyspepsia [Not Recovered/Not Resolved]

NARRATIVE: CASE EVENT DATE: 20220414
